FAERS Safety Report 8525199-7 (Version None)
Quarter: 2012Q3

REPORT INFORMATION
  Report Type: 
  Country: None (occurrence: None)
  Receive Date: 20120720
  Receipt Date: 20120716
  Transmission Date: 20120928
  Serious: Yes (Other)
  Sender: FDA-Public Use
  Company Number: PHHY2012AR061416

PATIENT
  Sex: Female

DRUGS (1)
  1. DIOVAN [Suspect]
     Indication: HYPERTENSION

REACTIONS (2)
  - DEAFNESS [None]
  - EAR HAEMORRHAGE [None]
